FAERS Safety Report 7007654-4 (Version None)
Quarter: 2010Q3

REPORT INFORMATION
  Report Type: 
  Country: None (occurrence: None)
  Receive Date: 20100922
  Receipt Date: 20100914
  Transmission Date: 20110219
  Serious: Yes (Other)
  Sender: FDA-Public Use
  Company Number: US-PFIZER INC-2010116866

PATIENT
  Sex: Female
  Weight: 63.492 kg

DRUGS (2)
  1. LIPITOR [Suspect]
     Indication: BLOOD CHOLESTEROL INCREASED
     Dosage: UNK, 1X/DAY
     Route: 048
  2. ACETYLSALICYLIC ACID [Concomitant]
     Dosage: UNK

REACTIONS (2)
  - ARTERIAL OCCLUSIVE DISEASE [None]
  - FEELING ABNORMAL [None]
